FAERS Safety Report 4993614-1 (Version None)
Quarter: 2006Q2

REPORT INFORMATION
  Report Type: 
  Country: None (occurrence: None)
  Receive Date: 20060504
  Receipt Date: 20060504
  Transmission Date: 20061013
  Serious: Yes (Hospitalization)
  Sender: FDA-Public Use
  Company Number: None

PATIENT
  Age: 60 Year
  Sex: Female
  Weight: 62.5964 kg

DRUGS (4)
  1. IRINOTECAN HCL [Suspect]
     Indication: COLORECTAL CANCER
     Dosage: 293 MG Q 21 DAYS IV
     Route: 042
     Dates: start: 20060418, end: 20060418
  2. CAPECITABINE [Suspect]
     Dosage: 950 MG BID X 14 DAYS PO
     Route: 048
     Dates: start: 20060418, end: 20060427
  3. CAPECITABINE [Suspect]
  4. CAPECITABINE [Suspect]

REACTIONS (1)
  - DIARRHOEA [None]
